FAERS Safety Report 17491221 (Version 1)
Quarter: 2020Q1

REPORT INFORMATION
  Report Type: Spontaneous
  Country: US (occurrence: US)
  Receive Date: 20200304
  Receipt Date: 20200304
  Transmission Date: 20200409
  Serious: Yes (Hospitalization, Other)
  Sender: FDA-Public Use
  Company Number: US-AUROBINDO-AUR-APL-2020-010234

PATIENT
  Age: 65 Year
  Sex: Female

DRUGS (1)
  1. METOPROLOL. [Suspect]
     Active Substance: METOPROLOL
     Indication: ANXIETY
     Dosage: 25 MILLIGRAM, TWO TIMES A DAY
     Route: 065

REACTIONS (3)
  - Syncope [Unknown]
  - Hypotension [Unknown]
  - Bradycardia [Recovering/Resolving]
